FAERS Safety Report 7125962-3 (Version None)
Quarter: 2010Q4

REPORT INFORMATION
  Report Type: 
  Country: None (occurrence: None)
  Receive Date: 20101129
  Receipt Date: 20101116
  Transmission Date: 20110411
  Serious: Yes (Hospitalization, Other)
  Sender: FDA-Public Use
  Company Number: US-JNJFOC-20101105240

PATIENT
  Sex: Female
  Weight: 76.2 kg

DRUGS (6)
  1. UNSPECIFIED FENTANYL [Suspect]
     Indication: PAIN
     Route: 062
  2. FENTANYL-100 [Suspect]
     Indication: BACK PAIN
     Dosage: NDC# 0781-7241-55
     Route: 062
  3. FENTANYL-100 [Suspect]
     Dosage: NDC# 0781-7241-55
     Route: 062
  4. FENTANYL-100 [Suspect]
     Indication: PAIN
     Dosage: NDC# 0781-7241-55
     Route: 062
  5. FENTANYL-100 [Suspect]
     Dosage: NDC# 0781-7241-55
     Route: 062
  6. OTHER THERAPEUTIC PRODUCTS [Concomitant]
     Route: 065

REACTIONS (6)
  - DRUG ADMINISTERED AT INAPPROPRIATE SITE [None]
  - INJURY [None]
  - JOINT INJURY [None]
  - LIMB INJURY [None]
  - PRODUCT ADHESION ISSUE [None]
  - WRONG TECHNIQUE IN DRUG USAGE PROCESS [None]
